FAERS Safety Report 20050262 (Version 6)
Quarter: 2022Q1

REPORT INFORMATION
  Report Type: Report from Study
  Country: US (occurrence: None)
  Receive Date: 20211109
  Receipt Date: 20220203
  Transmission Date: 20220423
  Serious: Yes (Hospitalization)
  Sender: FDA-Public Use
  Company Number: US-Eisai Medical Research-EC-2021-102690

PATIENT
  Age: 79 Year
  Sex: Male
  Weight: 72.3 kg

DRUGS (3)
  1. LENVATINIB [Suspect]
     Active Substance: LENVATINIB
     Indication: Prostate cancer metastatic
     Route: 048
     Dates: start: 20210726, end: 20211027
  2. PEMBROLIZUMAB [Suspect]
     Active Substance: PEMBROLIZUMAB
     Indication: Prostate cancer metastatic
     Route: 042
     Dates: start: 20210726, end: 20211018
  3. DEXAMETHASONE [Concomitant]
     Active Substance: DEXAMETHASONE
     Dates: start: 20210930

REACTIONS (2)
  - Adrenal insufficiency [Recovered/Resolved]
  - Skin infection [Recovered/Resolved with Sequelae]

NARRATIVE: CASE EVENT DATE: 20211030
